FAERS Safety Report 6650908-1 (Version None)
Quarter: 2010Q1

REPORT INFORMATION
  Report Type: 
  Country: None (occurrence: None)
  Receive Date: 20100325
  Receipt Date: 20100308
  Transmission Date: 20100710
  Serious: No
  Sender: FDA-Public Use
  Company Number: US-BIOGENIDEC-2010BI008057

PATIENT
  Age: 47 Year
  Sex: Female

DRUGS (2)
  1. TYSABRI [Suspect]
     Indication: MULTIPLE SCLEROSIS
     Route: 042
     Dates: start: 20080715, end: 20090101
  2. TYSABRI [Suspect]
     Route: 042
     Dates: start: 20090901

REACTIONS (2)
  - BLOOD LEAD INCREASED [None]
  - BLOOD MERCURY ABNORMAL [None]
